FAERS Safety Report 9271382 (Version 1)
Quarter: 2013Q2

REPORT INFORMATION
  Report Type: Spontaneous
  Country: JP (occurrence: JP)
  Receive Date: 20130506
  Receipt Date: 20130506
  Transmission Date: 20140414
  Serious: Yes (Death, Other)
  Sender: FDA-Public Use
  Company Number: PHHY2013JP038374

PATIENT
  Age: 60 Year
  Sex: Male

DRUGS (3)
  1. IMATINIB [Suspect]
     Indication: GASTROINTESTINAL STROMAL TUMOUR
     Dosage: 400 MG PER DAY
  2. IMATINIB [Suspect]
     Dosage: 400 MG PER DAY
  3. SUNITINIB [Suspect]
     Dosage: UNK UKN, UNK

REACTIONS (11)
  - Death [Fatal]
  - Abdominal wall haemorrhage [Unknown]
  - Tumour perforation [Unknown]
  - Gastrointestinal stromal tumour [Unknown]
  - Malignant neoplasm progression [Unknown]
  - Neoplasm recurrence [Unknown]
  - Vomiting [Unknown]
  - Abdominal pain [Unknown]
  - Oedema peripheral [Unknown]
  - General physical health deterioration [Unknown]
  - Drug resistance [Unknown]
